FAERS Safety Report 4705245-9 (Version None)
Quarter: 2005Q2

REPORT INFORMATION
  Report Type: 
  Country: None (occurrence: None)
  Receive Date: 20050629
  Receipt Date: 20050624
  Transmission Date: 20051028
  Serious: Yes (Other)
  Sender: FDA-Public Use
  Company Number: 005101

PATIENT
  Age: 50 Year
  Sex: Female

DRUGS (4)
  1. MEDROXYPROGESTERONE ACETATE [Suspect]
     Dosage: ORAL
     Route: 048
     Dates: start: 19990501, end: 20010501
  2. CYCRIN [Suspect]
     Dosage: ORAL
     Route: 048
     Dates: start: 19890101, end: 19990501
  3. PREMARIN [Suspect]
     Dosage: ORAL
     Route: 048
     Dates: start: 19890101, end: 20010501
  4. PREMPRO [Suspect]
     Dosage: ORAL
     Route: 048
     Dates: start: 20010501, end: 20030801

REACTIONS (1)
  - BREAST CANCER FEMALE [None]
